FAERS Safety Report 9494059 (Version 2)
Quarter: 2013Q3

REPORT INFORMATION
  Report Type: Spontaneous
  Country: IN (occurrence: None)
  Receive Date: 20130827
  Receipt Date: 20130904
  Transmission Date: 20140515
  Serious: Yes (Hospitalization)
  Sender: FDA-Public Use
  Company Number: 2013-14977

PATIENT
  Age: 22 Year
  Sex: Male
  Weight: 58 kg

DRUGS (2)
  1. ASPIRIN\DIPYRIDAMOLE [Suspect]
     Indication: CEREBROVASCULAR ACCIDENT PROPHYLAXIS
     Dosage: SINGLE DOSE  DAILY
     Route: 048
     Dates: start: 20130801, end: 20130808
  2. AGGRENOX [Suspect]
     Indication: CEREBROVASCULAR ACCIDENT PROPHYLAXIS
     Dosage: SINGLE DOSE
     Route: 048
     Dates: start: 20130801, end: 20130808

REACTIONS (9)
  - Road traffic accident [None]
  - Head injury [None]
  - Convulsion [None]
  - Loss of consciousness [None]
  - Epistaxis [None]
  - Vomiting [None]
  - Periorbital contusion [None]
  - Swelling [None]
  - Jaw disorder [None]
